FAERS Safety Report 8047631-8 (Version None)
Quarter: 2012Q1

REPORT INFORMATION
  Report Type: 
  Country: None (occurrence: None)
  Receive Date: 20120116
  Receipt Date: 20120109
  Transmission Date: 20120608
  Serious: Yes (Other)
  Sender: FDA-Public Use
  Company Number: GB-GLAXOSMITHKLINE-B0774333A

PATIENT
  Age: 29 Year
  Sex: Male

DRUGS (1)
  1. LAMICTAL [Suspect]
     Indication: TEMPORAL LOBE EPILEPSY
     Dosage: 200MG TWICE PER DAY
     Route: 048
     Dates: start: 20070101

REACTIONS (2)
  - VITAMIN D DECREASED [None]
  - HEPATIC ENZYME INCREASED [None]
